FAERS Safety Report 8018121 (Version 2)
Quarter: 2014Q1

REPORT INFORMATION
  Report Type: Spontaneous
  Country: US (occurrence: US)
  Receive Date: 20110701
  Receipt Date: 20140204
  Transmission Date: 20141002
  Serious: Yes (Hospitalization)
  Sender: FDA-Public Use
  Company Number: US-RANBAXY-2011US-45667

PATIENT
  Age: 49 Year
  Sex: Male

DRUGS (9)
  1. VANCOMYCIN [Suspect]
     Indication: OSTEOMYELITIS CHRONIC
     Dosage: UNK
     Route: 042
  2. CO-TRIMOXAZOLE [Suspect]
     Indication: OSTEOMYELITIS CHRONIC
     Dosage: UNK
     Route: 048
  3. DOXYCYCLINE HYDROCHLORIDE [Suspect]
     Indication: OSTEOMYELITIS CHRONIC
     Dosage: UNK
     Route: 065
  4. LINEZOLIDE [Suspect]
     Indication: OSTEOMYELITIS CHRONIC
     Dosage: 600 MG, TWICE DAILY
     Route: 048
  5. RIFAMPICIN [Suspect]
     Indication: OSTEOMYELITIS CHRONIC
     Dosage: UNK
     Route: 065
  6. TELAVANCIN [Suspect]
     Indication: OSTEOMYELITIS CHRONIC
     Dosage: 10 MG/KG/DAY
     Route: 042
  7. DAPTOMYCIN [Concomitant]
     Indication: OSTEOMYELITIS CHRONIC
     Dosage: 6 MG/KG PER DAY
     Route: 042
  8. DAPTOMYCIN [Concomitant]
     Dosage: UNK
  9. DAPTOMYCIN [Concomitant]
     Indication: OSTEOMYELITIS CHRONIC
     Dosage: 10 MG/KG/DAY
     Route: 042

REACTIONS (8)
  - Tinnitus [Unknown]
  - Deafness [Unknown]
  - Pyrexia [Unknown]
  - Dermatitis allergic [Unknown]
  - Nausea [Unknown]
  - Renal impairment [Recovering/Resolving]
  - Anaemia [Recovered/Resolved]
  - Vomiting [Unknown]
